FAERS Safety Report 8046343-4 (Version None)
Quarter: 2012Q1

REPORT INFORMATION
  Report Type: 
  Country: None (occurrence: None)
  Receive Date: 20120113
  Receipt Date: 20120110
  Transmission Date: 20120608
  Serious: No
  Sender: FDA-Public Use
  Company Number: US-PFIZER INC-2011241276

PATIENT
  Sex: Female
  Weight: 14 kg

DRUGS (2)
  1. GENOTROPIN [Suspect]
     Dosage: 0.8 MG, 1X/DAY, 7 INJECTIONS/WEEK
     Route: 058
  2. LEVOTHYROXINE [Concomitant]
     Dosage: 88 UG, UNK

REACTIONS (1)
  - INCREASED APPETITE [None]
